FAERS Safety Report 9062539 (Version 1)
Quarter: 2013Q1

REPORT INFORMATION
  Report Type: Spontaneous
  Country: US (occurrence: US)
  Receive Date: 20130111
  Receipt Date: 20130111
  Transmission Date: 20140127
  Serious: No
  Sender: FDA-Public Use
  Company Number: US-VIIV HEALTHCARE LIMITED-A1000459A

PATIENT
  Age: 52 Year
  Sex: Male
  Weight: 86.4 kg

DRUGS (15)
  1. COMBIVIR [Suspect]
     Indication: HIV INFECTION
     Route: 048
     Dates: start: 2008
  2. SUSTIVA [Suspect]
     Indication: HIV INFECTION
     Dosage: 600MG PER DAY
     Dates: start: 2008
  3. LANTUS [Concomitant]
     Indication: INSULIN-REQUIRING TYPE 2 DIABETES MELLITUS
     Dosage: 65UNIT PER DAY
     Dates: start: 1993
  4. HUMALOG [Concomitant]
     Indication: INSULIN-REQUIRING TYPE 2 DIABETES MELLITUS
     Dates: start: 1993
  5. NIFEDIPINE [Concomitant]
     Indication: HYPERTENSION
     Dosage: 90MG PER DAY
  6. ENALAPRIL [Concomitant]
     Indication: HYPERTENSION
     Dosage: 20MG TWICE PER DAY
  7. CARVEDILOL [Concomitant]
     Indication: HYPERTENSION
     Dosage: 25MG PER DAY
  8. HYDRALAZINE [Concomitant]
     Indication: HYPERTENSION
     Dosage: 25MG AS REQUIRED
  9. ALDACTONE [Concomitant]
     Indication: FLUID RETENTION
     Dosage: 50MG PER DAY
     Route: 048
  10. MOTRIN [Concomitant]
     Indication: NEUROPATHY PERIPHERAL
     Dosage: 150MG TWICE PER DAY
  11. ALLOPURINOL [Concomitant]
     Indication: GOUT
     Dosage: 100MG PER DAY
  12. LASIX [Concomitant]
     Indication: FLUID RETENTION
     Route: 048
  13. ZOLOFT [Concomitant]
     Indication: DEPRESSION
     Dosage: 50MG PER DAY
  14. FLOMAX [Concomitant]
     Indication: PROSTATOMEGALY
     Dosage: .4MG PER DAY
  15. VITAMIN C [Concomitant]
     Indication: SUPPLEMENTATION THERAPY
     Dosage: 500MG PER DAY

REACTIONS (1)
  - Gastrooesophageal reflux disease [Unknown]
